FAERS Safety Report 15559435 (Version 1)
Quarter: 2018Q4

REPORT INFORMATION
  Report Type: Spontaneous
  Country: JP (occurrence: JP)
  Receive Date: 20181029
  Receipt Date: 20181029
  Transmission Date: 20190205
  Serious: Yes (Congenital Anomaly, Other)
  Sender: FDA-Public Use
  Company Number: JP-TEVA-2018-JP-968783

PATIENT
  Sex: Female

DRUGS (4)
  1. CISPLATIN. [Suspect]
     Active Substance: CISPLATIN
     Indication: CERVIX CARCINOMA
     Dosage: RECEIVED A TOTAL OF FOUR COURSES
     Route: 064
  2. PACLITAXEL. [Suspect]
     Active Substance: PACLITAXEL
     Indication: UTERINE CANCER
  3. CISPLATIN. [Suspect]
     Active Substance: CISPLATIN
     Indication: UTERINE CANCER
  4. PACLITAXEL. [Suspect]
     Active Substance: PACLITAXEL
     Indication: CERVIX CARCINOMA
     Dosage: RECEIVED A TOTAL OF FOUR COURSES
     Route: 064

REACTIONS (2)
  - Keratitis-ichthyosis-deafness syndrome [Unknown]
  - Foetal exposure during pregnancy [Unknown]
